FAERS Safety Report 8572959-2 (Version None)
Quarter: 2012Q3

REPORT INFORMATION
  Report Type: 
  Country: None (occurrence: None)
  Receive Date: 20120806
  Receipt Date: 20120728
  Transmission Date: 20120928
  Serious: No
  Sender: FDA-Public Use
  Company Number: US-009507513-1207USA005261

PATIENT

DRUGS (6)
  1. GLIPIZIDE [Concomitant]
  2. CRESTOR [Concomitant]
  3. PLAVIX [Concomitant]
  4. LISINOPRIL [Concomitant]
  5. JANUMET [Suspect]
     Indication: TYPE 2 DIABETES MELLITUS
     Dosage: 50/1000MG, BID
     Route: 048
     Dates: start: 20110601
  6. LOVAZA [Concomitant]

REACTIONS (1)
  - LIPASE INCREASED [None]
